FAERS Safety Report 14210646 (Version 2)
Quarter: 2017Q4

REPORT INFORMATION
  Report Type: Report from Study
  Country: JP (occurrence: JP)
  Receive Date: 20171121
  Receipt Date: 20171204
  Transmission Date: 20180321
  Serious: Yes (Other)
  Sender: FDA-Public Use
  Company Number: JP-TEVA-2017-JP-826090

PATIENT
  Age: 68 Year
  Sex: Male

DRUGS (5)
  1. WARFARIN [Suspect]
     Active Substance: WARFARIN
     Indication: DEEP VEIN THROMBOSIS
     Dosage: 2MG/DAY
     Route: 065
  2. CARBOCISTEINE [Concomitant]
     Active Substance: CARBOCYSTEINE
     Route: 065
  3. TEICOPLANIN [Interacting]
     Active Substance: TEICOPLANIN
     Indication: PNEUMONIA STAPHYLOCOCCAL
     Dosage: 400MG/DAY
     Route: 065
  4. AMLODIPINE [Concomitant]
     Active Substance: AMLODIPINE BESYLATE
     Route: 065
  5. TEICOPLANIN [Interacting]
     Active Substance: TEICOPLANIN
     Indication: PNEUMONIA STAPHYLOCOCCAL
     Dosage: 800MG/DAY AND THEN
     Route: 065

REACTIONS (3)
  - International normalised ratio increased [Recovered/Resolved]
  - Prothrombin time prolonged [Recovered/Resolved]
  - Drug interaction [Recovered/Resolved]
